FAERS Safety Report 5935469-4 (Version None)
Quarter: 2008Q4

REPORT INFORMATION
  Report Type: 
  Country: None (occurrence: None)
  Receive Date: 20081030
  Receipt Date: 20081001
  Transmission Date: 20090506
  Serious: No
  Sender: FDA-Public Use
  Company Number: US-BAYER-200812925BCC

PATIENT
  Age: 25 Year
  Sex: Female
  Weight: 70 kg

DRUGS (4)
  1. ALEVE [Suspect]
     Indication: HEADACHE
     Dosage: TOTAL DAILY DOSE: 660 MG  UNIT DOSE: 220 MG
     Route: 048
     Dates: start: 20080701
  2. ASPIRIN [Suspect]
     Indication: HEADACHE
     Route: 048
     Dates: start: 20080701
  3. ORTHO TRI-CYCLEN [Concomitant]
     Indication: DRUG USE FOR UNKNOWN INDICATION
  4. VYVANSE [Concomitant]
     Indication: DRUG USE FOR UNKNOWN INDICATION

REACTIONS (2)
  - ERYTHEMA [None]
  - SWOLLEN TONGUE [None]
